FAERS Safety Report 9511012 (Version 3)
Quarter: 2014Q3

REPORT INFORMATION
  Report Type: Spontaneous
  Country: US (occurrence: None)
  Receive Date: 20130905
  Receipt Date: 20140710
  Transmission Date: 20150326
  Serious: Yes (Other)
  Sender: FDA-Public Use
  Company Number: 1868611

PATIENT
  Age: 27 Year
  Sex: Female
  Weight: 64.55 kg

DRUGS (6)
  1. MARCAINE [Suspect]
     Active Substance: BUPIVACAINE HYDROCHLORIDE
     Indication: SPINAL ANAESTHESIA
     Dosage: UKNOWN, X2, UNKNOWN, EPIDURAL
     Dates: start: 20130717, end: 20130717
  2. FOLIC ACID. [Concomitant]
     Active Substance: FOLIC ACID
  3. ZOFRAN [Concomitant]
     Active Substance: ONDANSETRON HYDROCHLORIDE
  4. PRENATAL VITAMINS [Concomitant]
     Active Substance: VITAMINS
  5. LIDOCAINE HCL [Suspect]
     Active Substance: LIDOCAINE HYDROCHLORIDE
     Indication: SPINAL ANAESTHESIA
     Dosage: UKNOWN, X2, UNKNOWN, EPIDURAL
     Dates: start: 20130717, end: 20130717
  6. EPINEPHRINE. [Suspect]
     Active Substance: EPINEPHRINE
     Indication: SPINAL ANAESTHESIA
     Dates: start: 20130717, end: 20130717

REACTIONS (3)
  - Hypoaesthesia [None]
  - Neck pain [None]
  - Maternal exposure during pregnancy [None]

NARRATIVE: CASE EVENT DATE: 20130806
